FAERS Safety Report 9378003 (Version 1)
Quarter: 2013Q3

REPORT INFORMATION
  Report Type: Spontaneous
  Country: US (occurrence: US)
  Receive Date: 20130701
  Receipt Date: 20130701
  Transmission Date: 20140515
  Serious: Yes (Other)
  Sender: FDA-Public Use
  Company Number: PHHY2013US066818

PATIENT
  Age: 83 Year
  Sex: Female

DRUGS (2)
  1. ASCRIPTIN - UNKNOWN FORMULA [Suspect]
     Indication: OSTEOARTHRITIS
     Dosage: 1 DF, UNK
     Route: 048
  2. TYLENOL [Concomitant]
     Indication: OSTEOARTHRITIS
     Dosage: AT BED TIME, PRN
     Route: 048

REACTIONS (12)
  - Diabetes mellitus [Recovered/Resolved]
  - Spinal column stenosis [Not Recovered/Not Resolved]
  - Wheelchair user [Not Recovered/Not Resolved]
  - Cellulitis [Not Recovered/Not Resolved]
  - Shock [Recovered/Resolved]
  - Weight decreased [Unknown]
  - Bedridden [Unknown]
  - Malaise [Unknown]
  - Wound [Unknown]
  - Blister [Not Recovered/Not Resolved]
  - Blood uric acid increased [Recovering/Resolving]
  - Incorrect drug administration duration [Unknown]
